FAERS Safety Report 5113832-1 (Version None)
Quarter: 2006Q3

REPORT INFORMATION
  Report Type: 
  Country: None (occurrence: None)
  Receive Date: 20060921
  Receipt Date: 20060921
  Transmission Date: 20061208
  Serious: Yes (Other)
  Sender: FDA-Public Use
  Company Number: None

PATIENT
  Age: 26 Year
  Sex: Male
  Weight: 74.8435 kg

DRUGS (2)
  1. ARTICANE 4% WITH  1:100 000 EPINEPHRINE (1.8 ML) [Suspect]
     Indication: ANAESTHESIA
  2. ARTICANE 4% WITH  1:100 000 EPINEPHRINE (1.8 ML) [Suspect]
     Indication: DENTAL TREATMENT

REACTIONS (2)
  - DYSGEUSIA [None]
  - PARAESTHESIA ORAL [None]
